FAERS Safety Report 5724372-0 (Version None)
Quarter: 2008Q2

REPORT INFORMATION
  Report Type: 
  Country: None (occurrence: None)
  Receive Date: 20080428
  Receipt Date: 20080415
  Transmission Date: 20081010
  Serious: Yes (Congenital Anomaly)
  Sender: FDA-Public Use
  Company Number: 08H-167-0314114-00

PATIENT
  Sex: 0

DRUGS (11)
  1. ONDANSETRON [Suspect]
     Dosage: TRANSPLACENTAL
     Route: 064
  2. FERROUS SULPHATE (FERROUS SULFATE) [Concomitant]
  3. FOLIC ACID [Concomitant]
  4. GAVISCON ADVANCE (GAVISCON ADVANCE) [Concomitant]
  5. OMEPRAZOLE [Concomitant]
  6. PROMETHAZINE [Concomitant]
  7. PROCHLORPERAZINE MALEATE [Concomitant]
  8. FLUOXETINE [Concomitant]
  9. GLYCEROL SUPPOSITORIES (GLYCEROL) [Concomitant]
  10. PROCHLORPERAZINE [Concomitant]
  11. DICLOFENAC SODIUM [Concomitant]

REACTIONS (2)
  - MATERNAL DRUGS AFFECTING FOETUS [None]
  - TALIPES [None]
